FAERS Safety Report 8619152-2 (Version None)
Quarter: 2012Q3

REPORT INFORMATION
  Report Type: 
  Country: None (occurrence: None)
  Receive Date: 20120824
  Receipt Date: 20120823
  Transmission Date: 20120928
  Serious: Yes (Other)
  Sender: FDA-Public Use
  Company Number: PHFR2012GB004360

PATIENT
  Sex: Male

DRUGS (5)
  1. CLOZARIL [Suspect]
     Indication: SCHIZOPHRENIA
     Dosage: 550 MG, DAILY
     Route: 048
     Dates: start: 20110404
  2. LORAZEPAM [Concomitant]
     Indication: AGITATION
     Dosage: 1 MG, DAILY
     Route: 048
  3. FILGRASTIM [Concomitant]
     Indication: NEUTROPHIL COUNT DECREASED
     Dosage: 300 MG, DAILY
     Route: 048
  4. DOCUSATE SODIUM [Concomitant]
     Indication: CONSTIPATION
     Dosage: 200 G, DAILY
     Route: 048
  5. ACETAMINOPHEN [Concomitant]
     Dosage: 4 G, DAILY (AS NEEDED)
     Route: 048

REACTIONS (5)
  - NEUTROPHIL COUNT INCREASED [None]
  - NEUTROPENIA [None]
  - WHITE BLOOD CELL COUNT INCREASED [None]
  - WHITE BLOOD CELL COUNT DECREASED [None]
  - NEUTROPHIL COUNT DECREASED [None]
